FAERS Safety Report 5754139-9 (Version None)
Quarter: 2008Q2

REPORT INFORMATION
  Report Type: 
  Country: None (occurrence: None)
  Receive Date: 20080527
  Receipt Date: 20080512
  Transmission Date: 20081010
  Serious: Yes (Death)
  Sender: FDA-Public Use
  Company Number: 2008S1000181

PATIENT
  Age: 65 Year
  Sex: Male

DRUGS (1)
  1. CUBICIN [Suspect]
     Dosage: IV
     Route: 042

REACTIONS (1)
  - CHOLESTASIS [None]
